FAERS Safety Report 8496538 (Version 5)
Quarter: 2012Q4

REPORT INFORMATION
  Report Type: 
  Country: US (occurrence: US)
  Receive Date: 20120405
  Receipt Date: 20120907
  Transmission Date: 20130627
  Serious: Yes (Other)
  Sender: FDA-Public Use
  Company Number: US-PFIZER INC-2012083885

PATIENT
  Age: 43 Year
  Sex: Male

DRUGS (1)
  1. LIPITOR [Suspect]
     Indication: BLOOD CHOLESTEROL INCREASED
     Dosage: 40 mg, UNK
     Route: 048
     Dates: start: 200907, end: 20090709

REACTIONS (3)
  - Neuromyopathy [Not Recovered/Not Resolved]
  - Myopathy [Not Recovered/Not Resolved]
  - Depression [Unknown]
